FAERS Safety Report 12325568 (Version 3)
Quarter: 2016Q2

REPORT INFORMATION
  Report Type: Report from Study
  Country: BG (occurrence: BG)
  Receive Date: 20160503
  Receipt Date: 20160525
  Transmission Date: 20160815
  Serious: Yes (Other)
  Sender: FDA-Public Use
  Company Number: PHHO2016BG006314

PATIENT
  Age: 73 Year
  Sex: Female
  Weight: 108.3 kg

DRUGS (6)
  1. RENITEC [Concomitant]
     Active Substance: ENALAPRIL MALEATE
     Indication: HYPERTENSION
     Dosage: 20 MG, BID Q24H
     Route: 048
     Dates: start: 20130223
  2. AIN457 [Suspect]
     Active Substance: SECUKINUMAB
     Indication: PSORIASIS
     Dosage: UNK
     Route: 058
     Dates: start: 20130109
  3. PROBITOR [Concomitant]
     Indication: GASTROOESOPHAGEAL REFLUX DISEASE
     Dosage: 20 MG, QD Q24H
     Route: 048
     Dates: start: 2007
  4. ISOPTIN [Concomitant]
     Active Substance: VERAPAMIL HYDROCHLORIDE
     Indication: HYPERTENSION
     Dosage: 180 MG, BID
     Route: 048
     Dates: start: 20130820
  5. DEHYDRATIN NEO [Concomitant]
     Indication: HYPERTENSION
     Dosage: 25 MG, QD Q24H
     Route: 048
     Dates: start: 20130223
  6. HOLETAR [Concomitant]
     Indication: DYSLIPIDAEMIA
     Dosage: 20 MG, QD Q24H
     Route: 048
     Dates: start: 2001

REACTIONS (1)
  - Cystitis [Not Recovered/Not Resolved]

NARRATIVE: CASE EVENT DATE: 20160427
